FAERS Safety Report 23264150 (Version 2)
Quarter: 2024Q4

REPORT INFORMATION
  Report Type: Spontaneous
  Country: FR (occurrence: FR)
  Receive Date: 20231205
  Receipt Date: 20241119
  Transmission Date: 20250115
  Serious: Yes (Hospitalization)
  Sender: MYLAN
  Company Number: None

PATIENT
  Age: 89 Year
  Sex: Male
  Weight: 64 kg

DRUGS (17)
  1. RAMIPRIL [Suspect]
     Active Substance: RAMIPRIL
     Indication: Cardiovascular event prophylaxis
     Dosage: 2.5 MILLIGRAM, QD
     Route: 048
  2. BISOPROLOL [Suspect]
     Active Substance: BISOPROLOL
     Indication: Cardiovascular event prophylaxis
     Dosage: 1.25 MILLIGRAM, QD (EVENING)
     Route: 048
  3. BISOPROLOL [Suspect]
     Active Substance: BISOPROLOL
     Dosage: 2.5 MILLIGRAM, QD (MORNING)
     Route: 048
  4. LANSOPRAZOLE [Suspect]
     Active Substance: LANSOPRAZOLE
     Indication: Gastrooesophageal reflux disease
     Dosage: 30 MILLIGRAM, QD
     Route: 048
  5. NEVIRAPINE [Suspect]
     Active Substance: NEVIRAPINE
     Indication: HIV infection
     Dosage: 400 MILLIGRAM, QD
     Route: 048
  6. ROSUVASTATIN [Suspect]
     Active Substance: ROSUVASTATIN
     Indication: Cardiovascular event prophylaxis
     Dosage: 10 MILLIGRAM, QD
     Route: 048
  7. Mycoster [Concomitant]
     Indication: Product used for unknown indication
     Dosage: 1 DOSAGE FORM, BID
     Route: 061
  8. LEVOTHYROXINE [Concomitant]
     Active Substance: LEVOTHYROXINE
     Indication: Product used for unknown indication
     Dosage: 100 MILLIGRAM, QD
     Route: 048
  9. AMIODARONE [Concomitant]
     Active Substance: AMIODARONE
     Indication: Atrial fibrillation
     Dosage: 100 MILLIGRAM, QD
     Route: 048
  10. PREGABALIN [Concomitant]
     Active Substance: PREGABALIN
     Indication: Product used for unknown indication
     Dosage: 75 MILLIGRAM, QD
     Route: 048
  11. REFRESH CELLUVISC [Concomitant]
     Active Substance: CARBOXYMETHYLCELLULOSE SODIUM
     Indication: Product used for unknown indication
     Dosage: 1 DOSAGE FORM, Q8H
     Route: 047
  12. LAMIVUDINE [Concomitant]
     Active Substance: LAMIVUDINE
     Indication: HIV infection
     Dosage: 300 MILLIGRAM, QD
     Route: 048
  13. ABACAVIR [Concomitant]
     Active Substance: ABACAVIR
     Indication: HIV infection
     Dosage: 600 MILLIGRAM, QD
     Route: 048
  14. FINASTERIDE [Concomitant]
     Active Substance: FINASTERIDE
     Indication: Benign prostatic hyperplasia
     Dosage: 5 MILLIGRAM, QD
     Route: 048
  15. ALFUZOSIN HYDROCHLORIDE [Concomitant]
     Active Substance: ALFUZOSIN HYDROCHLORIDE
     Indication: Benign prostatic hyperplasia
     Dosage: 10 MILLIGRAM, QD
     Route: 048
  16. ELIQUIS [Concomitant]
     Active Substance: APIXABAN
     Indication: Atrial fibrillation
     Dosage: 2.5 MILLIGRAM, QD (MORNING)
     Route: 048
  17. ELIQUIS [Concomitant]
     Active Substance: APIXABAN
     Dosage: 1.25 MILLIGRAM, QD (EVENING)
     Route: 048

REACTIONS (1)
  - Colitis microscopic [Recovering/Resolving]

NARRATIVE: CASE EVENT DATE: 20230401
